FAERS Safety Report 23848493 (Version 1)
Quarter: 2024Q2

REPORT INFORMATION
  Report Type: Spontaneous
  Country: US (occurrence: None)
  Receive Date: 20240511
  Receipt Date: 20240511
  Transmission Date: 20240716
  Serious: Yes (Hospitalization)
  Sender: FDA-Public Use
  Company Number: None

PATIENT
  Age: 72 Year
  Sex: Male
  Weight: 90.3 kg

DRUGS (1)
  1. FLUOROURACIL [Suspect]
     Active Substance: FLUOROURACIL
     Dates: end: 20240423

REACTIONS (9)
  - Diabetes mellitus inadequate control [None]
  - Disorientation [None]
  - Dysstasia [None]
  - Hypophagia [None]
  - Therapy interrupted [None]
  - Renal disorder [None]
  - Haematological infection [None]
  - General physical health deterioration [None]
  - Vascular device infection [None]

NARRATIVE: CASE EVENT DATE: 20240430
